FAERS Safety Report 6705800-0 (Version None)
Quarter: 2010Q2

REPORT INFORMATION
  Report Type: 
  Country: None (occurrence: None)
  Receive Date: 20100503
  Receipt Date: 20100422
  Transmission Date: 20101027
  Serious: Yes (Hospitalization, Other)
  Sender: FDA-Public Use
  Company Number: US-JNJFOC-20100102801

PATIENT
  Sex: Male
  Weight: 83.01 kg

DRUGS (4)
  1. TOPAMAX [Suspect]
     Indication: VERTIGO
     Route: 065
  2. TOPAMAX [Suspect]
     Route: 065
  3. TOPAMAX [Suspect]
     Indication: MIGRAINE PROPHYLAXIS
     Route: 065
  4. TOPAMAX [Suspect]
     Route: 065

REACTIONS (14)
  - ABNORMAL BEHAVIOUR [None]
  - AMNESIA [None]
  - BLOOD POTASSIUM DECREASED [None]
  - DELIRIUM [None]
  - DYSGEUSIA [None]
  - EATING DISORDER [None]
  - GAIT DISTURBANCE [None]
  - HOSTILITY [None]
  - INSOMNIA [None]
  - PARAESTHESIA [None]
  - PARANOIA [None]
  - PSYCHOTIC DISORDER [None]
  - TREMOR [None]
  - WEIGHT DECREASED [None]
